FAERS Safety Report 9612971 (Version 3)
Quarter: 2013Q4

REPORT INFORMATION
  Report Type: Report from Study
  Country: US (occurrence: US)
  Receive Date: 20131010
  Receipt Date: 20131105
  Transmission Date: 20140711
  Serious: Yes (Death, Hospitalization)
  Sender: FDA-Public Use
  Company Number: US-ACTELION-A-US2013-89049

PATIENT
  Age: 67 Year
  Sex: Female

DRUGS (4)
  1. VENTAVIS [Suspect]
     Indication: PULMONARY ARTERIAL HYPERTENSION
     Dosage: UNK
     Route: 055
     Dates: start: 201203
  2. SILDENAFIL [Concomitant]
  3. LETAIRIS [Concomitant]
  4. COUMADIN [Concomitant]

REACTIONS (5)
  - Pulmonary arterial hypertension [Fatal]
  - Cardiac failure congestive [Unknown]
  - Dyspnoea [Unknown]
  - Swelling [Unknown]
  - Fluid retention [Unknown]
